FAERS Safety Report 13892405 (Version 1)
Quarter: 2017Q3

REPORT INFORMATION
  Report Type: Spontaneous
  Country: US (occurrence: US)
  Receive Date: 20170822
  Receipt Date: 20170822
  Transmission Date: 20171127
  Serious: No
  Sender: FDA-Public Use
  Company Number: US-ROCHE-747100

PATIENT
  Sex: Female

DRUGS (1)
  1. ACTEMRA [Suspect]
     Active Substance: TOCILIZUMAB
     Indication: RHEUMATOID ARTHRITIS
     Dosage: LOW DOSE ACTEMRA
     Route: 042

REACTIONS (2)
  - Rash erythematous [Unknown]
  - Contusion [Unknown]

NARRATIVE: CASE EVENT DATE: 201010
